FAERS Safety Report 14481816 (Version 1)
Quarter: 2018Q1

REPORT INFORMATION
  Report Type: Report from Study
  Country: US (occurrence: US)
  Receive Date: 20180202
  Receipt Date: 20180202
  Transmission Date: 20180509
  Serious: Yes (Hospitalization)
  Sender: FDA-Public Use
  Company Number: US-TEVA-2018-US-854179

PATIENT
  Age: 17 Year
  Sex: Male
  Weight: 77.4 kg

DRUGS (9)
  1. PEGASPARGASE [Suspect]
     Active Substance: PEGASPARGASE
     Indication: LEUKAEMIA
     Dosage: DAYS 15,43
     Route: 042
     Dates: start: 20170905
  2. MERCAPTOPURINE. [Suspect]
     Active Substance: MERCAPTOPURINE
     Dosage: 100 MG X4;
     Route: 065
     Dates: start: 20170822
  3. CYTARABINE. [Suspect]
     Active Substance: CYTARABINE
     Indication: LEUKAEMIA
     Dosage: DAYS 1-4, 8-11,29-32, 36-39
     Route: 042
     Dates: start: 20170822
  4. MAGIC MOUTHWASH [Concomitant]
     Active Substance: DIPHENHYDRAMINE HYDROCHLORIDE\LIDOCAINE HYDROCHLORIDE\NYSTATIN
     Dates: start: 20171024
  5. METHOTREXATE. [Suspect]
     Active Substance: METHOTREXATE
     Indication: LEUKAEMIA
     Dosage: DAYS 1 ,8, 15,22
     Route: 037
     Dates: start: 20170822
  6. MERCAPTOPURINE. [Suspect]
     Active Substance: MERCAPTOPURINE
     Indication: LEUKAEMIA
     Dosage: 125 MG X3
     Route: 048
     Dates: start: 20170822
  7. BACTRIM [Concomitant]
     Active Substance: SULFAMETHOXAZOLE\TRIMETHOPRIM
     Dates: start: 20170826
  8. VINCRISTINE [Suspect]
     Active Substance: VINCRISTINE
     Indication: LEUKAEMIA
     Dosage: 2 MILLIGRAM DAILY; DAYS 15, 22, 43, 50
     Route: 042
     Dates: start: 20170905
  9. CYCLOPHOSPHAMIDE. [Suspect]
     Active Substance: CYCLOPHOSPHAMIDE
     Indication: LEUKAEMIA
     Dosage: 1870 MILLIGRAM DAILY; DAYS 1 AND 29
     Route: 042
     Dates: start: 20170822

REACTIONS (1)
  - Febrile neutropenia [Recovered/Resolved]

NARRATIVE: CASE EVENT DATE: 20171027
